FAERS Safety Report 17863422 (Version 5)
Quarter: 2020Q3

REPORT INFORMATION
  Report Type: Spontaneous
  Country: GB (occurrence: GB)
  Receive Date: 20200605
  Receipt Date: 20200721
  Transmission Date: 20201103
  Serious: Yes (Hospitalization, Other)
  Sender: FDA-Public Use
  Company Number: GB-BEH-2020118022

PATIENT
  Age: 51 Year
  Sex: Male
  Weight: 74 kg

DRUGS (11)
  1. CITALOPRAM HYDROCHLORIDE [Concomitant]
     Active Substance: CITALOPRAM HYDROCHLORIDE
  2. LANSOPRAZOLE. [Concomitant]
     Active Substance: LANSOPRAZOLE
  3. CALFOVIT D3 [Concomitant]
     Active Substance: CALCIUM PHOSPHATE\CHOLECALCIFEROL
  4. PRIVIGEN [Suspect]
     Active Substance: HUMAN IMMUNOGLOBULIN G
     Dosage: UNK
     Route: 042
     Dates: start: 20200420, end: 20200422
  5. PREDNISOLONE. [Concomitant]
     Active Substance: PREDNISOLONE
  6. DIAZEPAM. [Concomitant]
     Active Substance: DIAZEPAM
  7. PRIVIGEN [Suspect]
     Active Substance: HUMAN IMMUNOGLOBULIN G
     Dosage: 145 GRAM, SINGLE
     Route: 042
     Dates: start: 20200420, end: 20200422
  8. BACLOFEN. [Concomitant]
     Active Substance: BACLOFEN
  9. PRIVIGEN [Suspect]
     Active Substance: HUMAN IMMUNOGLOBULIN G
     Dosage: UNK
     Route: 042
     Dates: start: 20200420, end: 20200422
  10. PRIVIGEN [Suspect]
     Active Substance: HUMAN IMMUNOGLOBULIN G
     Dosage: UNK
     Route: 042
     Dates: start: 20200420, end: 20200422
  11. MYCOPHENOLATE MOFETIL. [Concomitant]
     Active Substance: MYCOPHENOLATE MOFETIL

REACTIONS (6)
  - Hepatitis B virus test positive [Unknown]
  - Suspected transmission of an infectious agent via product [Unknown]
  - Mycobacterium tuberculosis complex test positive [Unknown]
  - Hepatitis B core antibody positive [Unknown]
  - Exposure to communicable disease [Unknown]
  - Hepatitis B surface antibody positive [Unknown]

NARRATIVE: CASE EVENT DATE: 20200420
